FAERS Safety Report 5186789-5 (Version None)
Quarter: 2006Q4

REPORT INFORMATION
  Report Type: 
  Country: None (occurrence: None)
  Receive Date: 20061220
  Receipt Date: 20061101
  Transmission Date: 20070319
  Serious: No
  Sender: FDA-Public Use
  Company Number: US-AMGEN-KDL198888

PATIENT
  Sex: Male

DRUGS (1)
  1. ENBREL [Suspect]
     Indication: JUVENILE ARTHRITIS
     Route: 058
     Dates: start: 20040703

REACTIONS (6)
  - ARTHRITIS INFECTIVE [None]
  - FACIAL PAIN [None]
  - LOCALISED INFECTION [None]
  - PURULENT DISCHARGE [None]
  - RASH PUSTULAR [None]
  - SWELLING FACE [None]
